FAERS Safety Report 25570123 (Version 2)
Quarter: 2025Q3

REPORT INFORMATION
  Report Type: Spontaneous
  Country: US (occurrence: US)
  Receive Date: 20250717
  Receipt Date: 20250723
  Transmission Date: 20251021
  Serious: No
  Sender: Kenvue
  Company Number: US-KENVUE-20250703843

PATIENT
  Sex: Female

DRUGS (2)
  1. WOMENS ROGAINE UNSCENTED [Suspect]
     Active Substance: MINOXIDIL
     Indication: Alopecia
     Dosage: UNK, ONCE A DAY
     Route: 061
     Dates: start: 20250623
  2. WOMENS ROGAINE UNSCENTED [Suspect]
     Active Substance: MINOXIDIL
     Indication: Accidental exposure to product

REACTIONS (3)
  - Accidental exposure to product [Unknown]
  - Poor quality product administered [Unknown]
  - Product container issue [Unknown]

NARRATIVE: CASE EVENT DATE: 20250101
